FAERS Safety Report 8800160 (Version 2)
Quarter: 2013Q1

REPORT INFORMATION
  Report Type: Spontaneous
  Country: US (occurrence: US)
  Receive Date: 20120921
  Receipt Date: 20130212
  Transmission Date: 20140127
  Serious: No
  Sender: FDA-Public Use
  Company Number: US-009507513-1208USA008288

PATIENT
  Sex: Female

DRUGS (3)
  1. REBETOL [Suspect]
     Indication: HEPATITIS C
     Dosage: UNK
     Route: 048
     Dates: start: 20120301, end: 20130131
  2. VICTRELIS [Suspect]
     Indication: HEPATITIS C
     Dosage: UNK
     Route: 048
     Dates: start: 20120330, end: 20130131
  3. PEGASYS [Suspect]
     Indication: HEPATITIS C
     Dosage: UNK
     Dates: start: 20120302, end: 20130125

REACTIONS (11)
  - Red blood cell count decreased [Unknown]
  - Alopecia [Unknown]
  - Hair texture abnormal [Unknown]
  - Memory impairment [Unknown]
  - Decreased appetite [Unknown]
  - Mouth ulceration [Unknown]
  - Oral pain [Unknown]
  - Nausea [Unknown]
  - Pruritus [Unknown]
  - Haemoglobin decreased [Unknown]
  - Anaemia [Unknown]
